FAERS Safety Report 4387649-X (Version None)
Quarter: 2004Q2

REPORT INFORMATION
  Report Type: 
  Country: None (occurrence: None)
  Receive Date: 20040630
  Receipt Date: 20040527
  Transmission Date: 20050107
  Serious: No
  Sender: FDA-Public Use
  Company Number: US-GLAXOSMITHKLINE-A0512411A

PATIENT
  Age: 72 Year
  Sex: Female

DRUGS (3)
  1. ADVAIR HFA [Suspect]
     Indication: ASTHMA
     Dosage: 250MG PER DAY
     Route: 055
     Dates: start: 20030801, end: 20040101
  2. FLONASE [Concomitant]
  3. PREMARIN [Concomitant]

REACTIONS (3)
  - COUGH [None]
  - PHARMACEUTICAL PRODUCT COMPLAINT [None]
  - UNEXPECTED THERAPEUTIC DRUG EFFECT [None]
